FAERS Safety Report 26099088 (Version 1)
Quarter: 2025Q4

REPORT INFORMATION
  Report Type: Spontaneous
  Country: AU (occurrence: None)
  Receive Date: 20251128
  Receipt Date: 20251128
  Transmission Date: 20260118
  Serious: Yes (Other)
  Sender: UCB
  Company Number: AU-UCBSA-2025069711

PATIENT

DRUGS (5)
  1. BIMEKIZUMAB [Suspect]
     Active Substance: BIMEKIZUMAB
     Indication: Psoriasis
     Dosage: UNK
  2. METFORMIN [Concomitant]
     Active Substance: METFORMIN HYDROCHLORIDE
     Indication: Product used for unknown indication
     Dosage: UNK
  3. NAPROXEN [Concomitant]
     Active Substance: NAPROXEN
     Indication: Migraine
     Dosage: UNK
  4. RIMEGEPANT [Concomitant]
     Active Substance: RIMEGEPANT
     Indication: Migraine
     Dosage: UNK
  5. DIAZEPAM [Concomitant]
     Active Substance: DIAZEPAM
     Indication: Product used for unknown indication
     Dosage: UNK

REACTIONS (10)
  - Suicidal ideation [Recovered/Resolved]
  - Anaphylactic reaction [Unknown]
  - Anxiety [Unknown]
  - Panic attack [Unknown]
  - Joint swelling [Unknown]
  - Pain [Unknown]
  - Skin exfoliation [Unknown]
  - Rheumatic disorder [Unknown]
  - Condition aggravated [Unknown]
  - Taste disorder [Unknown]
